FAERS Safety Report 4618536-7 (Version None)
Quarter: 2005Q1

REPORT INFORMATION
  Report Type: 
  Country: None (occurrence: None)
  Receive Date: 20050323
  Receipt Date: 20050310
  Transmission Date: 20050727
  Serious: Yes (Other)
  Sender: FDA-Public Use
  Company Number: 2005045676

PATIENT
  Age: 50 Year
  Sex: Female

DRUGS (3)
  1. XALATAN [Suspect]
     Indication: GLAUCOMA
     Dosage: (QD), OPHTHALMIC
     Route: 047
     Dates: start: 20040901
  2. TELMISARTAN    (TELMISARTAN) [Concomitant]
  3. CIPROFIBRATE      (CIPROFIBRATE) [Concomitant]

REACTIONS (3)
  - MACULAR HOLE [None]
  - OCULAR HYPERAEMIA [None]
  - RETINAL DETACHMENT [None]
